FAERS Safety Report 13727053 (Version 1)
Quarter: 2017Q3

REPORT INFORMATION
  Report Type: Spontaneous
  Country: AU (occurrence: AU)
  Receive Date: 20170706
  Receipt Date: 20170706
  Transmission Date: 20171127
  Serious: Yes (Hospitalization)
  Sender: FDA-Public Use
  Company Number: AU-NAPPMUNDI-GBR-2017-0046436

PATIENT
  Sex: Male

DRUGS (14)
  1. PANAMAX [Concomitant]
     Active Substance: ACETAMINOPHEN
  2. PANTOPRAZOLE [Concomitant]
     Active Substance: PANTOPRAZOLE
  3. PREGABALIN. [Concomitant]
     Active Substance: PREGABALIN
  4. SLOW-K [Concomitant]
     Active Substance: POTASSIUM CHLORIDE
  5. TEMAZEPAM. [Concomitant]
     Active Substance: TEMAZEPAM
  6. WARFARIN [Concomitant]
     Active Substance: WARFARIN
  7. TARGIN [Suspect]
     Active Substance: NALOXONE HYDROCHLORIDE\OXYCODONE HYDROCHLORIDE
     Indication: ENDOCARDITIS
     Dosage: UNK
     Route: 048
     Dates: start: 20170331, end: 20170419
  8. FLUCLOXACILLIN [Concomitant]
     Active Substance: FLUCLOXACILLIN
  9. MAGMIN [Concomitant]
     Active Substance: MAGNESIUM ASPARTATE
  10. ENDONE [Concomitant]
     Active Substance: OXYCODONE HYDROCHLORIDE
  11. FRUSEMIDE                          /00032601/ [Concomitant]
     Active Substance: FUROSEMIDE
  12. METOPROLOL. [Concomitant]
     Active Substance: METOPROLOL
  13. PHENERGAN [Concomitant]
     Active Substance: PROMETHAZINE HYDROCHLORIDE
  14. THIAMINE. [Concomitant]
     Active Substance: THIAMINE

REACTIONS (2)
  - Hallucination [Recovered/Resolved]
  - Confusional state [Recovered/Resolved]

NARRATIVE: CASE EVENT DATE: 2017
